FAERS Safety Report 4596764-7 (Version None)
Quarter: 2005Q1

REPORT INFORMATION
  Report Type: 
  Country: None (occurrence: None)
  Receive Date: 20050228
  Receipt Date: 20040607
  Transmission Date: 20050727
  Serious: Yes (Life-Threatening, Disabling)
  Sender: FDA-Public Use
  Company Number: 8145

PATIENT
  Age: 50 Year
  Sex: Female

DRUGS (6)
  1. METHOTREXATE [Suspect]
     Indication: RHEUMATOID ARTHRITIS
     Dosage: 15 MG PO
     Route: 048
     Dates: start: 19990801, end: 20031001
  2. SULFASALAZINE [Concomitant]
  3. THYROXINE [Concomitant]
  4. WARFARIN SODIUM [Concomitant]
  5. AMILORIDE HCL AND HYDROCHLOROTHIAZIDE [Concomitant]
  6. ROFECOXIB [Concomitant]

REACTIONS (1)
  - OBLITERATIVE BRONCHIOLITIS [None]
